FAERS Safety Report 4648893-7 (Version None)
Quarter: 2005Q2

REPORT INFORMATION
  Report Type: 
  Country: None (occurrence: None)
  Receive Date: 20050429
  Receipt Date: 20050414
  Transmission Date: 20051028
  Serious: Yes (Hospitalization, Other)
  Sender: FDA-Public Use
  Company Number: US-MERCK-0504USA02669

PATIENT
  Age: 43 Year
  Sex: Male
  Weight: 101 kg

DRUGS (3)
  1. VYTORIN [Suspect]
     Indication: BLOOD CHOLESTEROL INCREASED
     Route: 048
  2. COUMADIN [Concomitant]
     Indication: PORTAL VEIN THROMBOSIS
     Route: 048
     Dates: start: 20040819
  3. DEPO-TESTOSTERONE [Concomitant]
     Indication: HYPOGONADISM
     Route: 030
     Dates: start: 20040507

REACTIONS (4)
  - CONSTIPATION [None]
  - DIVERTICULITIS [None]
  - HUNGER [None]
  - WEIGHT INCREASED [None]
